FAERS Safety Report 11968508 (Version 3)
Quarter: 2016Q2

REPORT INFORMATION
  Report Type: Spontaneous
  Country: CN (occurrence: CN)
  Receive Date: 20160128
  Receipt Date: 20160429
  Transmission Date: 20160815
  Serious: Yes (Life-Threatening)
  Sender: FDA-Public Use
  Company Number: CN-ROCHE-1699730

PATIENT
  Age: 3 Year
  Sex: Male

DRUGS (6)
  1. CEFMENOXIME [Suspect]
     Active Substance: CEFMENOXIME
     Indication: SEPSIS
  2. GANCICLOVIR SODIUM [Suspect]
     Active Substance: GANCICLOVIR SODIUM
     Indication: SEPSIS
  3. ROCEPHIN [Suspect]
     Active Substance: CEFTRIAXONE SODIUM
     Indication: PNEUMONIA
     Route: 041
     Dates: start: 20160117, end: 20160120
  4. ROCEPHIN [Suspect]
     Active Substance: CEFTRIAXONE SODIUM
     Indication: SEPSIS
  5. CEFMENOXIME [Suspect]
     Active Substance: CEFMENOXIME
     Indication: PNEUMONIA
     Route: 065
  6. GANCICLOVIR SODIUM [Suspect]
     Active Substance: GANCICLOVIR SODIUM
     Indication: PNEUMONIA
     Route: 065

REACTIONS (2)
  - Shock [Recovering/Resolving]
  - Haemolytic anaemia [Recovering/Resolving]

NARRATIVE: CASE EVENT DATE: 20160120
